FAERS Safety Report 24218383 (Version 2)
Quarter: 2024Q3

REPORT INFORMATION
  Report Type: Spontaneous
  Country: FR (occurrence: None)
  Receive Date: 20240816
  Receipt Date: 20240906
  Transmission Date: 20241016
  Serious: Yes (Other)
  Sender: ASTRAZENECA
  Company Number: 2024A180329

PATIENT
  Age: 84 Year
  Sex: Female
  Weight: 48 kg

DRUGS (2)
  1. IMFINZI [Suspect]
     Active Substance: DURVALUMAB
     Indication: Cholangiocarcinoma
     Route: 041
     Dates: start: 20231026, end: 20240612
  2. GEMZAR [Suspect]
     Active Substance: GEMCITABINE HYDROCHLORIDE
     Indication: Cholangiocarcinoma
     Route: 040
     Dates: start: 20231026, end: 20240307

REACTIONS (1)
  - Organising pneumonia [Recovering/Resolving]

NARRATIVE: CASE EVENT DATE: 20231220
